FAERS Safety Report 15962033 (Version 1)
Quarter: 2019Q1

REPORT INFORMATION
  Report Type: Report from Study
  Country: CA (occurrence: CA)
  Receive Date: 20190214
  Receipt Date: 20190214
  Transmission Date: 20190417
  Serious: Yes (Other)
  Sender: FDA-Public Use
  Company Number: CA-JNJFOC-20181208389

PATIENT
  Age: 57 Year
  Sex: Female

DRUGS (1)
  1. STELARA [Suspect]
     Active Substance: USTEKINUMAB
     Indication: CROHN^S DISEASE
     Dosage: STRENGTH = 90 MG
     Route: 058
     Dates: start: 20170213

REACTIONS (4)
  - Anal abscess [Unknown]
  - Abdominal pain [Not Recovered/Not Resolved]
  - Nausea [Unknown]
  - Anal fistula [Unknown]

NARRATIVE: CASE EVENT DATE: 201812
